FAERS Safety Report 6695036-4 (Version None)
Quarter: 2010Q2

REPORT INFORMATION
  Report Type: 
  Country: None (occurrence: None)
  Receive Date: 20100423
  Receipt Date: 20100413
  Transmission Date: 20101027
  Serious: Yes (Hospitalization)
  Sender: FDA-Public Use
  Company Number: PHHY2010FR22948

PATIENT
  Age: 55 Year
  Sex: Female

DRUGS (2)
  1. RASILEZ [Suspect]
     Dosage: 150 MG
     Dates: start: 20100201
  2. RASILEZ [Suspect]
     Dosage: 300 MG
     Dates: start: 20100301

REACTIONS (4)
  - ARRHYTHMIA [None]
  - INSOMNIA [None]
  - NOCTURIA [None]
  - TACHYCARDIA [None]
